FAERS Safety Report 10237759 (Version 1)
Quarter: 2014Q2

REPORT INFORMATION
  Report Type: Spontaneous
  Country: SK (occurrence: SK)
  Receive Date: 20140616
  Receipt Date: 20140616
  Transmission Date: 20141212
  Serious: Yes (Other)
  Sender: FDA-Public Use
  Company Number: SK-ROCHE-1419025

PATIENT
  Age: 33 Year
  Sex: Female

DRUGS (6)
  1. XOLAIR [Suspect]
     Indication: PRODUCT USED FOR UNKNOWN INDICATION
     Dosage: FOR 4 WEEKS
     Route: 058
     Dates: start: 20140310
  2. XOLAIR [Suspect]
     Route: 065
  3. FOSTER (BECLOMETASONE DIPROPIONATE/FORMOTEROL FUMARATE) [Concomitant]
  4. MONTELUKAST SODIUM [Concomitant]
  5. RUPAFIN [Concomitant]
  6. MEDROL [Concomitant]

REACTIONS (6)
  - Blood pressure increased [Not Recovered/Not Resolved]
  - Heart rate increased [Not Recovered/Not Resolved]
  - Asthenia [Unknown]
  - Vertigo [Unknown]
  - Palpitations [Unknown]
  - Headache [Unknown]
